FAERS Safety Report 16969776 (Version 1)
Quarter: 2019Q4

REPORT INFORMATION
  Report Type: Spontaneous
  Country: CA (occurrence: CA)
  Receive Date: 20191029
  Receipt Date: 20191029
  Transmission Date: 20200122
  Serious: Yes (Hospitalization, Other)
  Sender: FDA-Public Use
  Company Number: CA-PFIZER INC-2019464532

PATIENT
  Age: 34 Year
  Sex: Male
  Weight: 79.37 kg

DRUGS (1)
  1. CHAMPIX [Suspect]
     Active Substance: VARENICLINE TARTRATE
     Dosage: 1 MG, UNK
     Route: 048

REACTIONS (2)
  - Multiple sclerosis relapse [Recovering/Resolving]
  - Magnetic resonance imaging brain abnormal [Recovering/Resolving]
